FAERS Safety Report 6785503-7 (Version None)
Quarter: 2010Q2

REPORT INFORMATION
  Report Type: 
  Country: None (occurrence: None)
  Receive Date: 20100621
  Receipt Date: 20100621
  Transmission Date: 20101027
  Serious: Yes (Hospitalization)
  Sender: FDA-Public Use
  Company Number: None

PATIENT
  Age: 79 Year
  Sex: Female
  Weight: 74 kg

DRUGS (11)
  1. MS CONTIN [Suspect]
     Indication: PAIN
     Dosage: 30 MG Q12 PO CHRONIC
     Route: 048
  2. PERCOCET [Suspect]
     Indication: PAIN
     Dosage: 5/325MG BID PRN PO CHRONIC
     Route: 048
  3. AVALIDE [Concomitant]
  4. LEVOTHYROXINE [Concomitant]
  5. DILTIAZEM [Concomitant]
  6. ESCITALOPRAM [Concomitant]
  7. CLONIDINE [Concomitant]
  8. ALBUTEROL [Concomitant]
  9. SPIRIVA [Concomitant]
  10. AMBIEN [Concomitant]
  11. ASPIRIN [Concomitant]

REACTIONS (7)
  - DRUG ADMINISTRATION ERROR [None]
  - MENTAL STATUS CHANGES [None]
  - PNEUMONIA [None]
  - RENAL FAILURE ACUTE [None]
  - SOMNOLENCE [None]
  - URINARY RETENTION [None]
  - URINARY TRACT INFECTION [None]
